FAERS Safety Report 20913862 (Version 3)
Quarter: 2022Q2

REPORT INFORMATION
  Report Type: Spontaneous
  Country: MT (occurrence: MT)
  Receive Date: 20220604
  Receipt Date: 20220630
  Transmission Date: 20220721
  Serious: Yes (Other)
  Sender: FDA-Public Use
  Company Number: MT-MACLEODS PHARMACEUTICALS US LTD-MAC2022035862

PATIENT

DRUGS (1)
  1. OLANZAPINE [Suspect]
     Active Substance: OLANZAPINE
     Indication: Neuropsychiatric symptoms
     Dosage: 5 MILLIGRAM, QD; NIGHT
     Route: 048

REACTIONS (5)
  - Hypothermia [Recovered/Resolved]
  - Generalised oedema [Recovered/Resolved]
  - Delirium [Recovered/Resolved]
  - Oedema peripheral [Recovered/Resolved]
  - Product prescribing issue [Recovered/Resolved]
